FAERS Safety Report 15473418 (Version 3)
Quarter: 2022Q3

REPORT INFORMATION
  Report Type: Report from Study
  Country: BR (occurrence: None)
  Receive Date: 20181008
  Receipt Date: 20220912
  Transmission Date: 20221027
  Serious: Yes (Life-Threatening, Hospitalization)
  Sender: FDA-Public Use
  Company Number: BR-ROCHE-2125841

PATIENT
  Age: 57 Year
  Sex: Female
  Weight: 71 kg

DRUGS (12)
  1. ATEZOLIZUMAB [Suspect]
     Active Substance: ATEZOLIZUMAB
     Indication: Triple negative breast cancer
     Dosage: MOST RECENT DOSE PRIOR TO THE SAE RECEIVED ON 25/APR/2018 AT 15:55
     Route: 041
     Dates: start: 20180112
  2. PACLITAXEL [Suspect]
     Active Substance: PACLITAXEL
     Indication: Triple negative breast cancer
     Dosage: MOST RECENT DOSE 221.25 MG PRIOR TO THE SAE RECEIVED ON 04/APR/2018 AT 17:30
     Route: 042
     Dates: start: 20180112
  3. DOXORUBICIN [Suspect]
     Active Substance: DOXORUBICIN
     Indication: Triple negative breast cancer
     Dosage: MOST RECENT DOSE 105.6 MG PRIOR TO THE SAE RECEIVED ON 25/APR/2018 AT 17:40
     Route: 042
     Dates: start: 20180411
  4. CYCLOPHOSPHAMIDE [Suspect]
     Active Substance: CYCLOPHOSPHAMIDE
     Indication: Triple negative breast cancer
     Dosage: MOST RECENT DOSE 1056 MG PRIOR TO THE SAE RECEIVED ON 25/APR/2018 AT 17:55
     Route: 042
     Dates: start: 20180411
  5. FENERGAN [Concomitant]
     Indication: Rash
     Dates: start: 20180404, end: 20180705
  6. DIPYRONE [Concomitant]
     Active Substance: DIPYRONE
     Indication: Pain
     Dates: start: 20180516, end: 20180516
  7. HEPARIN SODIUM [Concomitant]
     Active Substance: HEPARIN SODIUM
     Indication: Thrombosis
     Dates: start: 20180516, end: 20180522
  8. PIPERACILLIN AND TAZOBACTAM [Concomitant]
     Active Substance: PIPERACILLIN SODIUM\TAZOBACTAM SODIUM
     Indication: Infection
     Dates: start: 20180516, end: 20180522
  9. LEVOTHYROXINE [Concomitant]
     Active Substance: LEVOTHYROXINE
     Indication: Hypothyroidism
     Dates: start: 20180516, end: 20180522
  10. CODEINE [Concomitant]
     Active Substance: CODEINE
     Indication: Cough
     Dates: start: 20180518, end: 20180522
  11. ONDANSETRON [Concomitant]
     Active Substance: ONDANSETRON
     Indication: Nausea
     Route: 048
     Dates: start: 20180414, end: 20180420
  12. ONDANSETRON [Concomitant]
     Active Substance: ONDANSETRON
     Route: 048
     Dates: start: 20180425, end: 20180425

REACTIONS (1)
  - Febrile neutropenia [Recovered/Resolved]

NARRATIVE: CASE EVENT DATE: 20180516
